FAERS Safety Report 7631105-X (Version None)
Quarter: 2011Q3

REPORT INFORMATION
  Report Type: 
  Country: None (occurrence: None)
  Receive Date: 20110725
  Receipt Date: 20110711
  Transmission Date: 20111222
  Serious: Yes (Other)
  Sender: FDA-Public Use
  Company Number: US-BAYER-2011-016359

PATIENT
  Sex: Female
  Weight: 57.596 kg

DRUGS (20)
  1. BACTRIM [Concomitant]
     Indication: RENAL TRANSPLANT
     Dosage: UNK
     Dates: start: 20090101
  2. AMOXICILLIN [Concomitant]
     Indication: HELICOBACTER GASTRITIS
     Dosage: UNK
     Dates: start: 20090201, end: 20090301
  3. FOLIC ACID [Concomitant]
     Dosage: 1 MG, UNK
  4. YAZ [Suspect]
     Route: 048
  5. LEVAQUIN [Concomitant]
     Dosage: 500 MG, UNK
  6. PROGRAF [Concomitant]
     Indication: RENAL TRANSPLANT
     Dosage: 1 G, UNK
     Dates: start: 20000101
  7. PROTONIX [Concomitant]
     Indication: GASTROOESOPHAGEAL REFLUX DISEASE
     Dosage: 40 MG, UNK
     Dates: start: 20050101
  8. ASPIRIN [Concomitant]
     Dosage: 81 MG, QD
  9. VITAMIN B-12 [Concomitant]
     Dosage: 1000 ?G, UNK
  10. ALBUTEROL SULFATE AUTOHALER [Concomitant]
     Dosage: UNK
     Dates: start: 20000101, end: 20090101
  11. REGLAN [Concomitant]
     Indication: IMPAIRED GASTRIC EMPTYING
     Dosage: 5 MG, UNK
     Dates: start: 20090201, end: 20090301
  12. VALCYTE [Concomitant]
     Dosage: 450 MG, QD
  13. SIMVASTATIN [Concomitant]
     Indication: RENAL TRANSPLANT
     Dosage: 10 MG, UNK
     Dates: start: 20000101
  14. FLORINEF [Concomitant]
     Dosage: 0.1 MG, UNK
  15. LOVAZA [Concomitant]
     Dosage: 1 MG, UNK
  16. ORTHO TRI-CYCLEN LO [Concomitant]
  17. METRONIDAZOLE [Concomitant]
  18. YASMIN [Suspect]
     Indication: PREMENSTRUAL SYNDROME
     Dosage: UNK UNK, QD
     Route: 048
     Dates: start: 20050601, end: 20080301
  19. CELLCEPT [Concomitant]
     Indication: RENAL TRANSPLANT
     Dosage: 500 MG, UNK
     Dates: start: 20090101
  20. MULTI-VITAMIN [Concomitant]
     Dosage: UNK UNK, QD

REACTIONS (11)
  - DISABILITY [None]
  - VOMITING [None]
  - CHOLECYSTITIS INFECTIVE [None]
  - DEFORMITY [None]
  - CHOLELITHIASIS [None]
  - NAUSEA [None]
  - PAIN [None]
  - EMOTIONAL DISTRESS [None]
  - DIARRHOEA [None]
  - DYSPEPSIA [None]
  - CHOLECYSTITIS CHRONIC [None]
